FAERS Safety Report 7900863-9 (Version None)
Quarter: 2011Q4

REPORT INFORMATION
  Report Type: 
  Country: None (occurrence: None)
  Receive Date: 20111104
  Receipt Date: 20111020
  Transmission Date: 20120403
  Serious: Yes (Other)
  Sender: FDA-Public Use
  Company Number: 1088960

PATIENT
  Age: 56 Year
  Sex: Female
  Weight: 75.5 kg

DRUGS (5)
  1. CARBOPLATIN [Suspect]
     Indication: CHEMOTHERAPY
     Dosage: INTRAVENOUS DRIP
     Route: 041
     Dates: start: 20111002
  2. HYDROCORTISONE [Concomitant]
  3. CARBOPLATIN [Suspect]
     Indication: CHEMOTHERAPY
     Dosage: INTRAVENOUS DRIP
     Route: 041
     Dates: start: 20111002
  4. GEMCITABINE [Concomitant]
  5. SODIUM CHLORIDE [Concomitant]

REACTIONS (2)
  - PRURITUS [None]
  - CHEST DISCOMFORT [None]
